FAERS Safety Report 5271333-4 (Version None)
Quarter: 2007Q1

REPORT INFORMATION
  Report Type: 
  Country: None (occurrence: None)
  Receive Date: 20070321
  Receipt Date: 20070312
  Transmission Date: 20070707
  Serious: Yes (Life-Threatening, Other)
  Sender: FDA-Public Use
  Company Number: PHBS2007ES04400

PATIENT
  Sex: Male

DRUGS (4)
  1. AMOXICILLIN [Suspect]
     Indication: INFECTION
     Dosage: 500MG DAILY
     Route: 048
     Dates: start: 20061010, end: 20061020
  2. CLAVULANIC ACID [Suspect]
     Indication: INFECTION
     Dosage: 125MG DAILY
     Route: 048
     Dates: start: 20061010, end: 20061020
  3. TOSEINA [Suspect]
  4. LESCOL [Suspect]
     Dosage: 80MG DAILY
     Dates: start: 20061001, end: 20061009

REACTIONS (8)
  - ALANINE AMINOTRANSFERASE INCREASED [None]
  - ASPARTATE AMINOTRANSFERASE INCREASED [None]
  - BLOOD BILIRUBIN INCREASED [None]
  - COUGH [None]
  - HEPATOCELLULAR DAMAGE [None]
  - INFECTION [None]
  - NAUSEA [None]
  - VOMITING [None]
